FAERS Safety Report 8873927 (Version 2)
Quarter: 2012Q4

REPORT INFORMATION
  Report Type: Report from Study
  Country: ES (occurrence: ES)
  Receive Date: 20121023
  Receipt Date: 20121207
  Transmission Date: 20130627
  Serious: Yes (Hospitalization)
  Sender: FDA-Public Use
  Company Number: ES-PFIZER INC-2012259103

PATIENT
  Age: 43 Year
  Sex: Female
  Weight: 73.5 kg

DRUGS (6)
  1. GENOTROPIN [Suspect]
     Indication: PANHYPOPITUITARISM
     Dosage: 0.8 mg, 1x/day, 7injections/week
     Route: 058
     Dates: start: 20090327
  2. LEVOTHROID [Concomitant]
     Indication: THYROID DISORDER
     Dosage: 125 ug, 1x/day
     Dates: start: 19780121
  3. LEVOTHROID [Concomitant]
     Indication: PRIMARY HYPOTHYROIDISM
  4. HIDROALTESONA [Concomitant]
     Indication: ACTH DECREASED
     Dosage: 20 mg, 1x/day
     Dates: start: 1985
  5. ORFIDAL [Concomitant]
     Dosage: 2 mg, 1x/day
     Dates: start: 1999
  6. PROZAC [Concomitant]
     Dosage: 20 mg, 1x/day
     Dates: start: 1999

REACTIONS (1)
  - Abortion [Recovered/Resolved]
